FAERS Safety Report 6744708-1 (Version None)
Quarter: 2010Q2

REPORT INFORMATION
  Report Type: 
  Country: None (occurrence: None)
  Receive Date: 20100527
  Receipt Date: 20100517
  Transmission Date: 20101027
  Serious: Yes (Hospitalization, Disabling, Other)
  Sender: FDA-Public Use
  Company Number: IE-ABBOTT-10P-229-0643227-00

PATIENT
  Sex: Male
  Weight: 98.4 kg

DRUGS (12)
  1. HUMIRA [Suspect]
     Indication: ARTHRITIS
     Route: 030
     Dates: start: 20090810, end: 20100330
  2. METATRIX [Concomitant]
     Indication: DRUG USE FOR UNKNOWN INDICATION
  3. METHOTREXATE [Concomitant]
     Indication: DRUG USE FOR UNKNOWN INDICATION
     Dates: start: 20081201
  4. ZYLORIC [Concomitant]
     Indication: GOUT
     Route: 048
  5. ASPIRIN [Concomitant]
     Indication: BLOOD DISORDER
     Route: 048
  6. EXFORGE [Concomitant]
     Indication: HYPERTENSION
     Dosage: 10/160MG
     Route: 048
  7. CRESTOR [Concomitant]
     Indication: BLOOD CHOLESTEROL
     Dosage: NOCTE
  8. NEBIVOLOL HCL [Concomitant]
     Indication: ANGINA PECTORIS
  9. COVERSYL [Concomitant]
     Indication: HYPERTENSION
  10. LOSEC I.V. [Concomitant]
     Indication: DRUG USE FOR UNKNOWN INDICATION
  11. H1N1 VACCINE [Concomitant]
     Indication: DRUG USE FOR UNKNOWN INDICATION
  12. FLU [Concomitant]
     Indication: DRUG USE FOR UNKNOWN INDICATION
     Route: 030

REACTIONS (6)
  - ARTHROPATHY [None]
  - DYSPNOEA [None]
  - DYSPNOEA EXERTIONAL [None]
  - OEDEMA PERIPHERAL [None]
  - RESPIRATORY DISORDER [None]
  - UPPER RESPIRATORY TRACT INFECTION [None]
